FAERS Safety Report 11764754 (Version 1)
Quarter: 2015Q4

REPORT INFORMATION
  Report Type: Spontaneous
  Country: US (occurrence: US)
  Receive Date: 20151120
  Receipt Date: 20151120
  Transmission Date: 20160304
  Serious: No
  Sender: FDA-Public Use
  Company Number: US-ELI_LILLY_AND_COMPANY-US201307001229

PATIENT
  Age: 72 Year
  Sex: Female

DRUGS (2)
  1. FORTEO [Suspect]
     Active Substance: TERIPARATIDE
     Indication: OSTEOPOROSIS
     Dosage: UNK, QD
  2. METHOTREXATE [Concomitant]
     Active Substance: METHOTREXATE
     Indication: SWELLING
     Dosage: 2.5 MG, WEEKLY (1/W)
     Dates: end: 201305

REACTIONS (3)
  - Arthralgia [Unknown]
  - Alopecia [Not Recovered/Not Resolved]
  - Infection [Unknown]

NARRATIVE: CASE EVENT DATE: 201305
